FAERS Safety Report 11617791 (Version 1)
Quarter: 2015Q4

REPORT INFORMATION
  Report Type: Spontaneous
  Country: BR (occurrence: BR)
  Receive Date: 20151009
  Receipt Date: 20151009
  Transmission Date: 20160304
  Serious: Yes (Death, Disabling, Other)
  Sender: FDA-Public Use
  Company Number: BR-ABBVIE-15P-020-1468237-00

PATIENT
  Age: 79 Year
  Sex: Male
  Weight: 73 kg

DRUGS (9)
  1. DEPAKENE [Suspect]
     Active Substance: VALPROIC ACID
     Indication: SEIZURE
     Dosage: 500 MG IN MORNING, AFTERNOON AND AT NIGHT; DAILY DOSE: 1500 MG
     Route: 048
     Dates: start: 201502
  2. GARDENAL [Concomitant]
     Active Substance: PHENOBARBITAL
     Indication: SEIZURE
     Dosage: 50 MG AT NIGHT; DAILY DOSE: 50 MG
     Route: 048
  3. ANCORON [Concomitant]
     Active Substance: AMIODARONE HYDROCHLORIDE
     Indication: ARRHYTHMIA
     Dosage: 1 TABLET IN THE MORNING; DAILY DOSE: 1 TABLET
     Route: 048
     Dates: start: 1996
  4. AMLODIPINE [Concomitant]
     Active Substance: AMLODIPINE BESYLATE
     Indication: BLOOD PRESSURE MEASUREMENT
     Dosage: ADMN OF HALF TABLET; 25 MG IN THE MORNING AND AFTERNOON; DAILY DOSE 25 MG.
     Route: 048
     Dates: start: 1996
  5. ACETYLSALICYLIC ACID [Concomitant]
     Active Substance: ASPIRIN
     Indication: PROPHYLAXIS
  6. DEPAKENE [Suspect]
     Active Substance: VALPROIC ACID
     Indication: SEIZURE
     Dosage: 10 ML AFTER BREAKFAST, LUNCH AND DINNER; DAILY DOSE: 30 ML
     Route: 048
     Dates: start: 20150212
  7. ACETYLSALICYLIC ACID [Concomitant]
     Active Substance: ASPIRIN
     Indication: GASTRIC DISORDER
     Dosage: 1 TABLET AFTER LUNCH; DAILY DOSE 1 TABLET
     Route: 048
     Dates: start: 1996
  8. ACETYLSALICYLIC ACID [Concomitant]
     Active Substance: ASPIRIN
     Indication: DYSBACTERIOSIS
  9. LOSARTAN. [Concomitant]
     Active Substance: LOSARTAN
     Indication: BLOOD PRESSURE MEASUREMENT
     Dosage: 1 TAB AT 6 PM AND 1 AT 6 AM; DAILY DOSE: 2 TABLETS
     Route: 048
     Dates: start: 1996

REACTIONS (10)
  - Death [Fatal]
  - Liquid product physical issue [Unknown]
  - Refusal of treatment by patient [Not Recovered/Not Resolved]
  - Seizure [Unknown]
  - Gait disturbance [Not Recovered/Not Resolved]
  - Cough [Recovering/Resolving]
  - Retching [Recovering/Resolving]
  - Seizure [Recovered/Resolved]
  - Dysphagia [Not Recovered/Not Resolved]
  - Product taste abnormal [Unknown]

NARRATIVE: CASE EVENT DATE: 2015
